FAERS Safety Report 6884309-8 (Version None)
Quarter: 2010Q3

REPORT INFORMATION
  Report Type: 
  Country: None (occurrence: None)
  Receive Date: 20100729
  Receipt Date: 20070831
  Transmission Date: 20110219
  Serious: Yes (Other)
  Sender: FDA-Public Use
  Company Number: US-PFIZER INC-2007053658

PATIENT
  Sex: Female
  Weight: 65.5 kg

DRUGS (2)
  1. CELEBREX [Suspect]
     Indication: FRACTURED COCCYX
     Dates: start: 20070501, end: 20070101
  2. LEVOTHYROXINE SODIUM [Concomitant]

REACTIONS (6)
  - GASTRIC DISORDER [None]
  - HYPERSENSITIVITY [None]
  - NAUSEA [None]
  - OEDEMA PERIPHERAL [None]
  - PRURITUS [None]
  - THYROID FUNCTION TEST ABNORMAL [None]
